FAERS Safety Report 9638275 (Version 1)
Quarter: 2013Q4

REPORT INFORMATION
  Report Type: Spontaneous
  Country: US (occurrence: None)
  Receive Date: 20131021
  Receipt Date: 20131021
  Transmission Date: 20140711
  Serious: Yes (Hospitalization)
  Sender: FDA-Public Use
  Company Number: None

PATIENT
  Age: 60 Year
  Sex: Male

DRUGS (1)
  1. SUTENT [Suspect]
     Indication: NEOPLASM MALIGNANT
     Dosage: 50 MG, DAILY FOR 4 WEEKS ON AND 2, PO
     Route: 048
     Dates: start: 20130601, end: 20130925

REACTIONS (3)
  - Thrombosis [None]
  - Haemorrhage [None]
  - Embolic stroke [None]
